FAERS Safety Report 19505551 (Version 2)
Quarter: 2021Q3

REPORT INFORMATION
  Report Type: Other
  Country: CA (occurrence: CA)
  Receive Date: 20210708
  Receipt Date: 20210728
  Transmission Date: 20211014
  Serious: Yes (Hospitalization, Disabling, Other)
  Sender: FDA-Public Use
  Company Number: CA-CELLTRION INC.-2021CA009001

PATIENT

DRUGS (18)
  1. MYCOPHENOLATE MOFETIL. [Concomitant]
     Active Substance: MYCOPHENOLATE MOFETIL
     Dosage: 1.0 DOSAGE FORM
  2. ACETAMINOPHEN. [Concomitant]
     Active Substance: ACETAMINOPHEN
     Indication: PREMEDICATION
     Dosage: 650.0 MG, TOTAL
  3. BRIVLERA [Concomitant]
     Active Substance: BRIVARACETAM
     Route: 065
  4. TEVA?DULOXETINE [Concomitant]
     Active Substance: DULOXETINE
     Dosage: 1.0 DOSAGE FORM
     Route: 065
  5. VITAMIN D [Concomitant]
     Active Substance: VITAMIN D NOS
  6. DILANTIN [Concomitant]
     Active Substance: PHENYTOIN
     Dosage: 1.0 DOSAGE FORM
  7. DIPHENHYDRAMINE. [Concomitant]
     Active Substance: DIPHENHYDRAMINE
     Indication: PREMEDICATION
     Dosage: 50.0 MG, TOTAL
  8. ALENDRONATE SODIUM. [Concomitant]
     Active Substance: ALENDRONATE SODIUM
  9. TADALAFIL. [Concomitant]
     Active Substance: TADALAFIL
  10. DILANTIN [Concomitant]
     Active Substance: PHENYTOIN
     Dosage: UNK
  11. METHYLPREDNISOLONE SODIUM SUCCINATE. [Concomitant]
     Active Substance: METHYLPREDNISOLONE SODIUM SUCCINATE
     Indication: PREMEDICATION
     Dosage: 100.0 MG, TOTAL
  12. DILANTIN [Concomitant]
     Active Substance: PHENYTOIN
     Dosage: 1.0 DOSAGE FORM
  13. MYCOPHENOLATE MOFETIL. [Concomitant]
     Active Substance: MYCOPHENOLATE MOFETIL
     Dosage: 1.0 DOSAGE FORM
  14. MYCOPHENOLATE MOFETIL. [Concomitant]
     Active Substance: MYCOPHENOLATE MOFETIL
     Dosage: UNK
  15. CALCIUM [Concomitant]
     Active Substance: CALCIUM
  16. PREGABALIN. [Concomitant]
     Active Substance: PREGABALIN
     Dosage: 1.0 DOSAGE FORM
     Route: 065
  17. RITUXIMAB (UNKNOWN) [Suspect]
     Active Substance: RITUXIMAB
     Indication: GRANULOMATOSIS WITH POLYANGIITIS
     Dosage: 715.0 MG, 1 EVERY 1 WEEK
     Route: 042
  18. ALPRAZOLAM. [Concomitant]
     Active Substance: ALPRAZOLAM

REACTIONS (8)
  - Off label use [Not Recovered/Not Resolved]
  - Bladder disorder [Not Recovered/Not Resolved]
  - Contusion [Not Recovered/Not Resolved]
  - Fall [Not Recovered/Not Resolved]
  - Blood pressure fluctuation [Not Recovered/Not Resolved]
  - Hip fracture [Not Recovered/Not Resolved]
  - Intentional product use issue [Not Recovered/Not Resolved]
  - Headache [Not Recovered/Not Resolved]
